FAERS Safety Report 18524489 (Version 3)
Quarter: 2020Q4

REPORT INFORMATION
  Report Type: Spontaneous
  Country: CA (occurrence: CA)
  Receive Date: 20201119
  Receipt Date: 20201207
  Transmission Date: 20210114
  Serious: Yes (Other)
  Sender: FDA-Public Use
  Company Number: CA-PFIZER INC-2019282790

PATIENT
  Age: 64 Year
  Sex: Female

DRUGS (3)
  1. PLAQUENIL S [Concomitant]
     Active Substance: HYDROXYCHLOROQUINE SULFATE
     Dosage: UNK
     Route: 065
  2. AIMOVIG [Concomitant]
     Active Substance: ERENUMAB-AOOE
     Indication: MIGRAINE
     Dosage: UNK
     Route: 065
  3. XELJANZ [Suspect]
     Active Substance: TOFACITINIB CITRATE
     Indication: RHEUMATOID ARTHRITIS
     Dosage: 5 MG, 2X/DAY
     Route: 048
     Dates: start: 20190625, end: 2020

REACTIONS (13)
  - Herpes zoster [Unknown]
  - Condition aggravated [Unknown]
  - Blood triglycerides increased [Unknown]
  - Diarrhoea [Unknown]
  - Lung disorder [Unknown]
  - Irritable bowel syndrome [Unknown]
  - Blood cholesterol increased [Unknown]
  - Malabsorption [Unknown]
  - Immunodeficiency [Unknown]
  - Fatigue [Unknown]
  - Limb injury [Unknown]
  - Therapeutic product effect incomplete [Unknown]
  - Constipation [Unknown]

NARRATIVE: CASE EVENT DATE: 201911
